FAERS Safety Report 5492073-2 (Version None)
Quarter: 2007Q4

REPORT INFORMATION
  Report Type: 
  Country: None (occurrence: None)
  Receive Date: 20071018
  Receipt Date: 20071001
  Transmission Date: 20080405
  Serious: Yes (Life-Threatening)
  Sender: FDA-Public Use
  Company Number: 2007S1009849

PATIENT
  Age: 50 Year
  Sex: Male

DRUGS (7)
  1. ETOPOSIDE [Suspect]
     Indication: B-CELL LYMPHOMA
  2. CYCLOPHOSPHAMIDE [Suspect]
     Indication: B-CELL LYMPHOMA
  3. PREDNISONE [Suspect]
     Indication: B-CELL LYMPHOMA
  4. IODINE-131-TOSITUMOMAB [Suspect]
     Indication: B-CELL LYMPHOMA
  5. RITUXIMAB [Suspect]
     Indication: B-CELL LYMPHOMA
  6. IFOSFAMIDE [Suspect]
     Indication: B-CELL LYMPHOMA
  7. CARBOPLATIN [Suspect]
     Indication: B-CELL LYMPHOMA

REACTIONS (2)
  - MYELODYSPLASTIC SYNDROME [None]
  - THROMBOCYTOPENIA [None]
